FAERS Safety Report 9915553 (Version 4)
Quarter: 2014Q2

REPORT INFORMATION
  Report Type: Spontaneous
  Country: US (occurrence: US)
  Receive Date: 20140221
  Receipt Date: 20140410
  Transmission Date: 20141212
  Serious: Yes (Other)
  Sender: FDA-Public Use
  Company Number: US-JNJFOC-2011002390

PATIENT
  Age: 59 Year
  Sex: Female
  Weight: 90.7 kg

DRUGS (11)
  1. NEOSPORIN LIP HEALTH DAILY HYDRATION THERAPY [Suspect]
     Indication: CHAPPED LIPS
     Dosage: REPEATEDLY ALL DAY
     Route: 061
     Dates: start: 201012, end: 20110124
  2. NEOSPORIN LIP HEALTH DAILY HYDRATION THERAPY [Suspect]
     Indication: LIP DRY
     Dosage: REPEATEDLY ALL DAY
     Route: 061
     Dates: start: 201012, end: 20110124
  3. NEOSPORIN LIP HEALTH OVERNIGHT RENEWAL THERAPY [Suspect]
     Indication: LIP DRY
     Dosage: DAILY DOSE TEXT: ONCE DAILY
     Route: 061
     Dates: start: 201012, end: 20110124
  4. ALL OTHER THERAPEUTIC PRODUCTS [Concomitant]
     Indication: PRODUCT USED FOR UNKNOWN INDICATION
     Dosage: DAILY DOSE TEXT: UNKNOWN
     Route: 065
  5. ADVIL [Concomitant]
     Indication: PRODUCT USED FOR UNKNOWN INDICATION
     Route: 065
  6. ADVIL PM [Concomitant]
     Indication: PRODUCT USED FOR UNKNOWN INDICATION
     Route: 065
  7. GEMFIBROZIL [Concomitant]
     Indication: PRODUCT USED FOR UNKNOWN INDICATION
     Route: 065
  8. LUNESTA [Concomitant]
     Indication: PRODUCT USED FOR UNKNOWN INDICATION
     Route: 065
  9. PRISTIQ [Concomitant]
     Indication: PRODUCT USED FOR UNKNOWN INDICATION
     Route: 065
  10. SEROQUEL [Concomitant]
     Indication: PRODUCT USED FOR UNKNOWN INDICATION
     Route: 065
  11. ZOCOR [Concomitant]
     Indication: PRODUCT USED FOR UNKNOWN INDICATION
     Route: 065

REACTIONS (2)
  - Application site burn [Recovered/Resolved]
  - Cheilitis [Recovering/Resolving]
